FAERS Safety Report 4294668-0 (Version None)
Quarter: 2004Q1

REPORT INFORMATION
  Report Type: 
  Country: None (occurrence: None)
  Receive Date: 20040213
  Receipt Date: 20040203
  Transmission Date: 20041129
  Serious: Yes (Other)
  Sender: FDA-Public Use
  Company Number: FR-GLAXOSMITHKLINE-B0322018A

PATIENT
  Age: 55 Year
  Sex: Male

DRUGS (1)
  1. CIBLOR [Suspect]
     Indication: SUPERINFECTION
     Route: 048
     Dates: start: 20040101, end: 20040101

REACTIONS (5)
  - ANAEMIA [None]
  - ASTHENIA [None]
  - BLOOD ALKALINE PHOSPHATASE INCREASED [None]
  - GAMMA-GLUTAMYLTRANSFERASE INCREASED [None]
  - LIVER DISORDER [None]
